FAERS Safety Report 10456633 (Version 2)
Quarter: 2014Q4

REPORT INFORMATION
  Report Type: Spontaneous
  Country: DE (occurrence: DE)
  Receive Date: 20140916
  Receipt Date: 20141029
  Transmission Date: 20150528
  Serious: Yes (Other)
  Sender: FDA-Public Use
  Company Number: PHHY2014DE112766

PATIENT
  Age: 68 Year
  Sex: Female

DRUGS (1)
  1. GLIVEC [Suspect]
     Active Substance: IMATINIB MESYLATE
     Indication: CHRONIC MYELOID LEUKAEMIA
     Dosage: 400 MG, DAILY
     Route: 048
     Dates: start: 200311

REACTIONS (19)
  - Sensory loss [Unknown]
  - Abdominal distension [Unknown]
  - Dyspnoea [Recovering/Resolving]
  - Vision blurred [Unknown]
  - Bone pain [Unknown]
  - Muscle disorder [Unknown]
  - Gait disturbance [Unknown]
  - Muscle spasms [Unknown]
  - Myalgia [Unknown]
  - Eye pain [Unknown]
  - Fluid retention [Recovering/Resolving]
  - Lacrimation increased [Recovering/Resolving]
  - Nausea [Unknown]
  - Weight increased [Unknown]
  - Rash [Unknown]
  - Diarrhoea [Unknown]
  - Arthralgia [Unknown]
  - Muscular weakness [Unknown]
  - Alopecia [Unknown]

NARRATIVE: CASE EVENT DATE: 2011
